FAERS Safety Report 5644431-0 (Version None)
Quarter: 2008Q1

REPORT INFORMATION
  Report Type: 
  Country: None (occurrence: None)
  Receive Date: 20080229
  Receipt Date: 20080226
  Transmission Date: 20080703
  Serious: Yes (Life-Threatening)
  Sender: FDA-Public Use
  Company Number: JP-BRISTOL-MYERS SQUIBB COMPANY-14031173

PATIENT
  Age: 36 Year
  Sex: Male

DRUGS (8)
  1. BARACLUDE [Suspect]
     Indication: HEPATITIS B
     Dosage: THERAPY DATES: 06SEP07 TO 11SEP07(6 DAYS); 19SEP07 RESTARTED
     Route: 048
     Dates: start: 20070906
  2. SOLU-MEDROL [Suspect]
     Indication: HEPATITIS B
     Route: 041
     Dates: start: 20070905, end: 20070910
  3. PREDONINE [Suspect]
     Indication: HEPATITIS B
  4. MULTAMIN [Concomitant]
     Route: 042
     Dates: start: 20070905, end: 20070909
  5. MANGANESE CHLORIDE + ZINC SULFATE [Concomitant]
     Route: 042
     Dates: start: 20070905, end: 20070909
  6. FAMOTIDINE [Concomitant]
     Route: 042
     Dates: start: 20070905, end: 20070907
  7. TAKEPRON [Concomitant]
     Route: 048
     Dates: start: 20070908
  8. GABEXATE MESYLATE [Concomitant]
     Route: 042
     Dates: start: 20070905, end: 20070908

REACTIONS (1)
  - REVERSIBLE POSTERIOR LEUKOENCEPHALOPATHY SYNDROME [None]
